FAERS Safety Report 6031408-9 (Version None)
Quarter: 2009Q1

REPORT INFORMATION
  Report Type: 
  Country: None (occurrence: None)
  Receive Date: 20090108
  Receipt Date: 20081208
  Transmission Date: 20090719
  Serious: No
  Sender: FDA-Public Use
  Company Number: US-BAYER-200836082NA

PATIENT
  Sex: Female

DRUGS (1)
  1. MIRENA [Suspect]
     Indication: CONTRACEPTION
     Route: 015
     Dates: start: 20080703

REACTIONS (4)
  - IUCD COMPLICATION [None]
  - LIBIDO DECREASED [None]
  - VAGINAL HAEMORRHAGE [None]
  - VULVAL DISORDER [None]
